FAERS Safety Report 18847095 (Version 1)
Quarter: 2021Q1

REPORT INFORMATION
  Report Type: Spontaneous
  Country: US (occurrence: US)
  Receive Date: 20210204
  Receipt Date: 20210204
  Transmission Date: 20210419
  Serious: No
  Sender: FDA-Public Use
  Company Number: US-PFIZER INC-2021092625

PATIENT
  Age: 66 Year
  Sex: Female
  Weight: 76.64 kg

DRUGS (4)
  1. ZOMETA [Concomitant]
     Active Substance: ZOLEDRONIC ACID
     Dosage: 4 MG/10
  2. IBRANCE [Suspect]
     Active Substance: PALBOCICLIB
     Indication: BREAST CANCER FEMALE
     Dosage: 125 MG
     Route: 048
     Dates: start: 20201026
  3. IBRANCE [Suspect]
     Active Substance: PALBOCICLIB
     Dosage: 100 MG, CYCLIC ((1 DAILY FOR 21 DAYS))
     Route: 048
  4. CALCITRATE [Concomitant]
     Active Substance: CALCIUM CITRATE
     Dosage: 200 (950)

REACTIONS (3)
  - White blood cell count decreased [Unknown]
  - Fatigue [Unknown]
  - Pain [Unknown]
